FAERS Safety Report 8816240 (Version 2)
Quarter: 2013Q1

REPORT INFORMATION
  Report Type: Report from Study
  Country: JP (occurrence: JP)
  Receive Date: 20120930
  Receipt Date: 20130315
  Transmission Date: 20140127
  Serious: Yes (Hospitalization, Other)
  Sender: FDA-Public Use
  Company Number: JP-009507513-2012SP019398

PATIENT
  Age: 66 Year
  Sex: Female
  Weight: 63 kg

DRUGS (20)
  1. SENNOSIDES [Concomitant]
     Dosage: 12 MG, QD FORMULATION: POR
     Route: 048
  2. FAMOTIDINE [Concomitant]
     Dosage: DOSAGE IS UNCERTAIN DURING A DAY, DAILY DOSE UNKNOWN, FORMULATION: POR
     Route: 048
  3. CRAVIT [Concomitant]
     Indication: PROPHYLAXIS
     Dosage: 0.5 %, QD FORMULATION:EED
     Route: 047
     Dates: start: 20120125
  4. MYSLEE [Concomitant]
     Dosage: 5 MG, PRN, FORMULATION:POR
     Route: 048
     Dates: start: 20120302
  5. PRIMPERAN [Concomitant]
     Dosage: 10 MG, PRN
     Route: 042
     Dates: start: 20120129, end: 20120129
  6. ROHYPNOL [Concomitant]
     Dosage: 1 MG, QD
     Route: 048
     Dates: start: 20120326
  7. RIZE [Concomitant]
     Dosage: 15 MG, QD
     Route: 048
     Dates: start: 20120327
  8. CONSTAN [Concomitant]
     Dosage: 0.4 MG, PRN
     Route: 048
     Dates: start: 20120327
  9. FAMOTIDINE [Concomitant]
     Dosage: UPDATE(14MAY2012) FORMULATION POR
     Route: 048
  10. PRIMPERAN [Concomitant]
     Dosage: FORMULATION POR, DAILY DOSE UNKNOWN
     Route: 048
     Dates: start: 20120309
  11. LOXOPROFEN [Concomitant]
     Indication: PYREXIA
     Dosage: 60 MG, PRN FORMULATION:POR
     Route: 048
     Dates: start: 20120121
  12. REBAMIPIDE [Concomitant]
     Indication: PYREXIA
     Dosage: 100 MG, PRN FORMULATION :POR
     Route: 048
     Dates: start: 20120121
  13. PEGINTRON [Suspect]
     Indication: CHRONIC HEPATITIS C
     Dosage: 1.5 MICROGRAM PER KILOGRAM, QW
     Route: 058
     Dates: start: 20120120
  14. REBETOL [Suspect]
     Indication: CHRONIC HEPATITIS C
     Dosage: 800 MG, QD
     Route: 048
     Dates: start: 20120120, end: 20120203
  15. REBETOL [Suspect]
     Dosage: 600 MG, QD
     Route: 048
     Dates: start: 20120204, end: 20120210
  16. REBETOL [Suspect]
     Dosage: 400 MG, QD
     Route: 048
     Dates: start: 20120211, end: 20120217
  17. REBETOL [Suspect]
     Dosage: 200 MG, QD
     Route: 048
     Dates: start: 20120218, end: 20120330
  18. REBETOL [Suspect]
     Dosage: 200 MG, QD
     Route: 048
     Dates: start: 20120413
  19. TELAVIC [Suspect]
     Indication: CHRONIC HEPATITIS C
     Dosage: 2250 MG, QD
     Route: 048
     Dates: start: 20120120, end: 20120330
  20. MAGLAX [Concomitant]
     Dosage: 990 MG, QD, FORMULATION:POR
     Route: 048

REACTIONS (4)
  - Malaise [Recovered/Resolved]
  - Decreased appetite [Recovered/Resolved]
  - Anaemia [Recovered/Resolved]
  - Loss of consciousness [Recovered/Resolved]
